FAERS Safety Report 8017181-3 (Version None)
Quarter: 2012Q1

REPORT INFORMATION
  Report Type: 
  Country: None (occurrence: None)
  Receive Date: 20120102
  Receipt Date: 20111220
  Transmission Date: 20120608
  Serious: Yes (Life-Threatening)
  Sender: FDA-Public Use
  Company Number: GB-ROCHE-1023906

PATIENT
  Age: 74 Year
  Sex: Female

DRUGS (9)
  1. LEFLUNOMIDE [Concomitant]
     Indication: RHEUMATOID ARTHRITIS
     Route: 048
     Dates: start: 20070101, end: 20110101
  2. METFORMIN HCL [Concomitant]
     Indication: DIABETES MELLITUS
     Route: 048
  3. ACETAMINOPHEN [Concomitant]
     Indication: RHEUMATOID ARTHRITIS
     Dosage: AS NECESSARY
     Route: 048
  4. MABTHERA [Suspect]
     Indication: RHEUMATOID ARTHRITIS
     Route: 042
     Dates: start: 20080101
  5. DIHYDROCODEIN [Concomitant]
     Indication: RHEUMATOID ARTHRITIS
     Dosage: AS NECESSARY
     Route: 048
  6. NOVAPEN /IRE/ [Concomitant]
     Indication: DIABETES MELLITUS
  7. OMEPRAZOLE [Concomitant]
  8. ATENOLOL [Concomitant]
     Indication: HYPERTENSION
     Route: 048
     Dates: start: 20100706
  9. CETIRIZINE [Concomitant]

REACTIONS (4)
  - COUGH [None]
  - LUNG NEOPLASM MALIGNANT [None]
  - METASTASES TO ADRENALS [None]
  - DYSPNOEA [None]
